FAERS Safety Report 9022353 (Version 1)
Quarter: 2013Q1

REPORT INFORMATION
  Report Type: Spontaneous
  Country: FR (occurrence: FR)
  Receive Date: 20130118
  Receipt Date: 20130118
  Transmission Date: 20140127
  Serious: Yes (Death, Other)
  Sender: FDA-Public Use
  Company Number: FR-JNJFOC-20130107022

PATIENT
  Age: 65 None
  Sex: Male

DRUGS (10)
  1. XARELTO [Suspect]
     Indication: ATRIAL FIBRILLATION
     Route: 048
     Dates: start: 20121129, end: 20121203
  2. XARELTO [Suspect]
     Indication: CEREBROVASCULAR ACCIDENT PROPHYLAXIS
     Route: 048
     Dates: start: 20121129, end: 20121203
  3. FLUINDIONE [Concomitant]
     Indication: ATRIAL FIBRILLATION
     Route: 065
  4. LERCAN [Concomitant]
     Indication: PRODUCT USED FOR UNKNOWN INDICATION
     Route: 065
  5. MORPHINE [Concomitant]
     Indication: PRODUCT USED FOR UNKNOWN INDICATION
     Route: 065
  6. KERLONE [Concomitant]
     Indication: PRODUCT USED FOR UNKNOWN INDICATION
     Route: 065
  7. DEGARELIX [Concomitant]
     Indication: PRODUCT USED FOR UNKNOWN INDICATION
     Route: 065
  8. AREDIA [Concomitant]
     Indication: PRODUCT USED FOR UNKNOWN INDICATION
     Route: 065
  9. DIGOXINE [Concomitant]
     Indication: ATRIAL FIBRILLATION
     Dosage: 0.25 (UNITS UNSPECIFIED)
     Route: 065
  10. ANDROCUR [Concomitant]
     Indication: PRODUCT USED FOR UNKNOWN INDICATION
     Route: 065

REACTIONS (8)
  - Ischaemic stroke [Fatal]
  - Hepatocellular injury [Unknown]
  - Cholestasis [Unknown]
  - Lipase increased [Unknown]
  - Thrombocytopenia [Unknown]
  - Abnormal behaviour [Unknown]
  - Disorientation [Unknown]
  - Confusional state [Unknown]
